FAERS Safety Report 18622563 (Version 2)
Quarter: 2020Q4

REPORT INFORMATION
  Report Type: Other
  Country: SE (occurrence: SE)
  Receive Date: 20201216
  Receipt Date: 20201221
  Transmission Date: 20210114
  Serious: Yes (Life-Threatening)
  Sender: FDA-Public Use
  Company Number: SE-ASTELLAS-2020US043730

PATIENT
  Age: 22 Year
  Sex: Female

DRUGS (1)
  1. BETMIGA [Suspect]
     Active Substance: MIRABEGRON
     Indication: INCONTINENCE
     Route: 065
     Dates: start: 20200830, end: 20200904

REACTIONS (3)
  - Hypersensitivity [Recovering/Resolving]
  - Urticaria chronic [Recovering/Resolving]
  - Irritable bowel syndrome [Recovering/Resolving]

NARRATIVE: CASE EVENT DATE: 2020
